FAERS Safety Report 24220526 (Version 1)
Quarter: 2024Q3

REPORT INFORMATION
  Report Type: Spontaneous
  Country: DE (occurrence: DE)
  Receive Date: 20240818
  Receipt Date: 20240818
  Transmission Date: 20241016
  Serious: Yes (Life-Threatening, Hospitalization, Other)
  Sender: AUROBINDO
  Company Number: DE-AMK-278869

PATIENT
  Age: 64 Year
  Sex: Female
  Weight: 66 kg

DRUGS (5)
  1. AMOXICILLIN\CLAVULANIC ACID [Suspect]
     Active Substance: AMOXICILLIN\CLAVULANIC ACID
     Indication: Paranasal sinus inflammation
     Dosage: 1 DOSAGE FORM, 0.5 DAYS (1-0-1)
     Route: 048
     Dates: start: 20240312, end: 20240321
  2. JOD [Concomitant]
     Indication: Product used for unknown indication
     Dosage: 100 MICROGRAM, ONCE A DAY (1-0-0)
     Route: 048
  3. AMBROXOL HYDROCHLORIDE [Concomitant]
     Active Substance: AMBROXOL HYDROCHLORIDE
     Indication: Paranasal sinus inflammation
     Dosage: 1 DOSAGE FORM, ONCE A DAY (1-0-0)
     Route: 065
     Dates: start: 20240311
  4. PANTOPRAZOLE SODIUM [Concomitant]
     Active Substance: PANTOPRAZOLE SODIUM
     Indication: Gastrointestinal disorder prophylaxis
     Dosage: 20 MILLIGRAM, ONCE A DAY (1-0-0)
     Route: 065
     Dates: start: 20240311
  5. DIETARY SUPPLEMENT\HERBALS [Concomitant]
     Active Substance: DIETARY SUPPLEMENT\HERBALS
     Indication: Product used for unknown indication
     Dosage: UNK
     Route: 065

REACTIONS (6)
  - Drug-induced liver injury [Recovering/Resolving]
  - Chromaturia [Recovering/Resolving]
  - Faeces pale [Recovering/Resolving]
  - Jaundice [Recovering/Resolving]
  - Asthenia [Recovering/Resolving]
  - Sick leave [Recovered/Resolved]

NARRATIVE: CASE EVENT DATE: 20240401
